FAERS Safety Report 13108794 (Version 1)
Quarter: 2017Q1

REPORT INFORMATION
  Report Type: Spontaneous
  Country: IR (occurrence: IR)
  Receive Date: 20170112
  Receipt Date: 20170112
  Transmission Date: 20170428
  Serious: Yes (Hospitalization, Other)
  Sender: FDA-Public Use
  Company Number: IR-JNJFOC-20170108388

PATIENT

DRUGS (1)
  1. TRAMADOL HYDROCHLORIDE. [Suspect]
     Active Substance: TRAMADOL HYDROCHLORIDE
     Indication: PRODUCT USED FOR UNKNOWN INDICATION
     Route: 065

REACTIONS (9)
  - Sinus tachycardia [Unknown]
  - Electrocardiogram QRS complex prolonged [Unknown]
  - Electrocardiogram T wave inversion [Unknown]
  - Seizure [Unknown]
  - Intentional overdose [Unknown]
  - Bundle branch block right [Unknown]
  - Electrocardiogram abnormal [Unknown]
  - Toxicity to various agents [Unknown]
  - Sinus bradycardia [Unknown]
